FAERS Safety Report 18943957 (Version 1)
Quarter: 2021Q1

REPORT INFORMATION
  Report Type: Spontaneous
  Country: GB (occurrence: GB)
  Receive Date: 20210226
  Receipt Date: 20210226
  Transmission Date: 20210420
  Serious: Yes (Death)
  Sender: FDA-Public Use
  Company Number: GB-BIO PRODUCTS LABORATORY LTD-2107355

PATIENT
  Age: 60 Year
  Sex: Male

DRUGS (2)
  1. LEVETRIACETAM [Concomitant]
     Active Substance: LEVETIRACETAM
  2. GENERIC  IVIG [Suspect]
     Active Substance: HUMAN IMMUNOGLOBULIN G
     Indication: HYPOGAMMAGLOBULINAEMIA

REACTIONS (2)
  - Pneumonia [Fatal]
  - Sepsis [Fatal]
